FAERS Safety Report 7540468-5 (Version None)
Quarter: 2011Q2

REPORT INFORMATION
  Report Type: 
  Country: None (occurrence: None)
  Receive Date: 20110610
  Receipt Date: 20110524
  Transmission Date: 20111010
  Serious: Yes (Death, Hospitalization)
  Sender: FDA-Public Use
  Company Number: A0788564A

PATIENT
  Age: 74 Year
  Sex: Male

DRUGS (7)
  1. AVANDIA [Concomitant]
     Dosage: 8MG PER DAY
     Route: 065
     Dates: start: 19990101, end: 20050501
  2. LANTUS [Concomitant]
  3. GLUCOTROL XL [Concomitant]
  4. ROSIGLITAZONE MALEATE [Suspect]
     Indication: DIABETES MELLITUS
     Route: 048
     Dates: start: 20010524, end: 20050501
  5. PULMICORT [Concomitant]
  6. CIALIS [Concomitant]
  7. LASIX [Concomitant]

REACTIONS (3)
  - DEATH [None]
  - CARDIAC FAILURE CONGESTIVE [None]
  - AORTIC STENOSIS [None]
